FAERS Safety Report 13698842 (Version 1)
Quarter: 2017Q2

REPORT INFORMATION
  Report Type: Report from Study
  Country: US (occurrence: US)
  Receive Date: 20170628
  Receipt Date: 20170628
  Transmission Date: 20170830
  Serious: Yes (Life-Threatening, Hospitalization, Other)
  Sender: FDA-Public Use
  Company Number: US-AMGEN-USASP2017095729

PATIENT
  Age: 79 Year
  Sex: Female

DRUGS (2)
  1. PROCRIT [Suspect]
     Active Substance: ERYTHROPOIETIN
     Indication: NEPHROGENIC ANAEMIA
     Dosage: UNK UNK, AS NECESSARY
     Route: 058
     Dates: start: 201611, end: 2017
  2. ASPIRIN. [Concomitant]
     Active Substance: ASPIRIN
     Dosage: UNK

REACTIONS (10)
  - Adverse drug reaction [Not Recovered/Not Resolved]
  - Hypoxia [Unknown]
  - Asthenia [Not Recovered/Not Resolved]
  - Hospitalisation [Recovered/Resolved]
  - Respiration abnormal [Unknown]
  - Apparent death [Unknown]
  - Transfusion [Unknown]
  - Pleural effusion [Unknown]
  - Unevaluable event [Not Recovered/Not Resolved]
  - Pericardial effusion [Unknown]

NARRATIVE: CASE EVENT DATE: 2016
